FAERS Safety Report 19592024 (Version 1)
Quarter: 2021Q3

REPORT INFORMATION
  Report Type: Spontaneous
  Country: US (occurrence: US)
  Receive Date: 20210722
  Receipt Date: 20210722
  Transmission Date: 20211014
  Serious: No
  Sender: FDA-Public Use
  Company Number: US-AUROBINDO-AUR-APL-2020-060260

PATIENT
  Age: 83 Year
  Sex: Female

DRUGS (1)
  1. ALPRAZOLAM. [Suspect]
     Active Substance: ALPRAZOLAM
     Indication: TREMOR
     Dosage: UNK
     Route: 065

REACTIONS (5)
  - Nausea [Unknown]
  - Illness [Unknown]
  - Product substitution issue [Unknown]
  - Muscle spasms [Unknown]
  - Drug ineffective [Unknown]
